FAERS Safety Report 6559988-5 (Version None)
Quarter: 2010Q1

REPORT INFORMATION
  Report Type: 
  Country: None (occurrence: None)
  Receive Date: 20100129
  Receipt Date: 20090916
  Transmission Date: 20100710
  Serious: No
  Sender: FDA-Public Use
  Company Number: US-ABBOTT-09P-163-0597651-00

PATIENT
  Sex: Female
  Weight: 15.89 kg

DRUGS (1)
  1. HUMIRA [Suspect]
     Indication: JUVENILE ARTHRITIS
     Dates: start: 20090701

REACTIONS (2)
  - INJECTION SITE PAIN [None]
  - MOBILITY DECREASED [None]
